FAERS Safety Report 9586390 (Version 1)
Quarter: 2013Q4

REPORT INFORMATION
  Report Type: Spontaneous
  Country: VE (occurrence: VE)
  Receive Date: 20131003
  Receipt Date: 20131003
  Transmission Date: 20140711
  Serious: Yes (Hospitalization)
  Sender: FDA-Public Use
  Company Number: VE-JNJFOC-20130917839

PATIENT
  Age: 53 Year
  Sex: Female

DRUGS (6)
  1. XARELTO [Suspect]
     Indication: THROMBOSIS PROPHYLAXIS
     Route: 048
     Dates: start: 20130916, end: 20130924
  2. XARELTO [Suspect]
     Indication: THROMBOSIS PROPHYLAXIS
     Route: 048
     Dates: start: 20130825, end: 20130915
  3. XARELTO [Suspect]
     Indication: DEEP VEIN THROMBOSIS
     Route: 048
     Dates: start: 20130825, end: 20130915
  4. XARELTO [Suspect]
     Indication: DEEP VEIN THROMBOSIS
     Route: 048
     Dates: start: 20130916, end: 20130924
  5. AMARYL [Concomitant]
     Indication: DIABETES MELLITUS
     Route: 065
  6. ATACAND [Concomitant]
     Indication: HYPERTENSION
     Route: 065

REACTIONS (2)
  - Thrombosis [Not Recovered/Not Resolved]
  - Drug ineffective [Unknown]
